FAERS Safety Report 6003103-3 (Version None)
Quarter: 2008Q4

REPORT INFORMATION
  Report Type: 
  Country: None (occurrence: None)
  Receive Date: 20081215
  Receipt Date: 20081215
  Transmission Date: 20090506
  Serious: No
  Sender: FDA-Public Use
  Company Number: None

PATIENT
  Sex: Female
  Weight: 68.0396 kg

DRUGS (1)
  1. METOPROLOL TARTRATE [Suspect]
     Dosage: 1-A DAY

REACTIONS (1)
  - MIDDLE INSOMNIA [None]
